FAERS Safety Report 25476371 (Version 1)
Quarter: 2025Q2

REPORT INFORMATION
  Report Type: Spontaneous
  Country: AU (occurrence: AU)
  Receive Date: 20250625
  Receipt Date: 20250625
  Transmission Date: 20250716
  Serious: Yes (Life-Threatening)
  Sender: NOVO NORDISK
  Company Number: AU-NOVOPROD-1439217

PATIENT
  Age: 90 Year
  Sex: Male
  Weight: 167 kg

DRUGS (2)
  1. NOVORAPID [Suspect]
     Active Substance: INSULIN ASPART
     Indication: Type 2 diabetes mellitus
     Dates: start: 2022
  2. GLICLAZIDE [Concomitant]
     Active Substance: GLICLAZIDE
     Indication: Product used for unknown indication
     Dosage: 60 MG, QID
     Route: 048

REACTIONS (10)
  - Hyperglycaemia [Unknown]
  - Device failure [Unknown]
  - Device issue [Unknown]
  - Device leakage [Unknown]
  - Product quality issue [Unknown]
  - Fatigue [Recovered/Resolved]
  - Discomfort [Unknown]
  - Flushing [Recovered/Resolved]
  - Head discomfort [Recovered/Resolved]
  - Drug dose omission by device [Unknown]

NARRATIVE: CASE EVENT DATE: 20250519
